FAERS Safety Report 9934207 (Version 2)
Quarter: 2014Q1

REPORT INFORMATION
  Report Type: Report from Study
  Country: US (occurrence: US)
  Receive Date: 20140228
  Receipt Date: 20140318
  Transmission Date: 20141002
  Serious: Yes (Other)
  Sender: FDA-Public Use
  Company Number: US-ALLERGAN-1402998CX

PATIENT
  Age: 30 Year
  Sex: Female

DRUGS (8)
  1. SKINMEDICA DAILY PHYSICAL DEFENSE SUNSCREEN SPF30+ [Suspect]
     Indication: PROPHYLAXIS
     Dosage: APPLIED QAM
     Route: 061
     Dates: start: 20130809, end: 20131107
  2. SKINMEDICA LYTERA SKIN BRIGHTENING COMPLEX [Suspect]
     Indication: PROPHYLAXIS
     Dosage: APPLIED BID
     Route: 061
     Dates: start: 20130809, end: 20131107
  3. SKINMEDICA REJUVENATIVE MOISTURIZER [Suspect]
     Indication: PROPHYLAXIS
     Dosage: APPLIED BID
     Route: 061
     Dates: start: 20130809, end: 20131107
  4. SKINMEDICA RETINOL COMPLEX 0.5 [Suspect]
     Indication: PROPHYLAXIS
     Dosage: APPLIED QPM
     Route: 061
     Dates: start: 20130809, end: 20131107
  5. SKINMEDICA TNS ESSENTIAL SERUM [Suspect]
     Indication: PROPHYLAXIS
     Dosage: APPLIED BID
     Route: 061
     Dates: start: 20130808, end: 20131107
  6. SKINMEDICA FACIAL CLEANSER [Suspect]
     Indication: PROPHYLAXIS
     Dosage: APPLIED BID
     Dates: start: 20130809, end: 20131107
  7. ESTRADIOL [Concomitant]
     Indication: HYSTERECTOMY
     Dosage: UNK UNK, QD
     Dates: start: 1992, end: 20140110
  8. HYDROCHLOROTHIAZIDE [Concomitant]
     Indication: HYPERTENSION
     Dosage: QD
     Dates: start: 2010, end: 20140110

REACTIONS (1)
  - Intraductal proliferative breast lesion [Not Recovered/Not Resolved]
